FAERS Safety Report 4705828-6 (Version None)
Quarter: 2005Q3

REPORT INFORMATION
  Report Type: 
  Country: None (occurrence: None)
  Receive Date: 20050701
  Receipt Date: 20040107
  Transmission Date: 20060218
  Serious: Yes (Hospitalization, Other)
  Sender: FDA-Public Use
  Company Number: BE-ABBOTT-04P-013-0246436-00

PATIENT
  Sex: Female

DRUGS (24)
  1. CLARITHROMYCIN [Suspect]
     Indication: PYREXIA
     Dates: start: 20030622, end: 20030709
  2. AMPHOTERICIN B [Suspect]
     Indication: ACUTE MYELOID LEUKAEMIA
     Route: 042
     Dates: start: 20030623, end: 20030625
  3. CYTARABINE [Concomitant]
     Indication: ACUTE MYELOID LEUKAEMIA
     Dates: start: 20030610
  4. AMSACRINE [Concomitant]
     Indication: ACUTE MYELOID LEUKAEMIA
     Dates: start: 20030610
  5. PIPERACILLIN [Concomitant]
     Indication: PYREXIA
  6. TAZOBACTAM [Concomitant]
     Indication: PYREXIA
  7. MEROPENEM [Concomitant]
     Indication: PYREXIA
  8. PLATELETS [Concomitant]
     Indication: LEUKAEMIA
     Route: 042
  9. PERFUSION MIXTE [Concomitant]
     Indication: POOR PERIPHERAL CIRCULATION
  10. RANITIDINE [Concomitant]
     Indication: PROPHYLAXIS AGAINST GASTROINTESTINAL ULCER
     Route: 042
  11. FUROSEMIDE [Concomitant]
     Indication: WEIGHT CONTROL
     Route: 042
  12. ACYCLOVIR [Concomitant]
     Indication: ANTIVIRAL PROPHYLAXIS
     Route: 042
  13. IMIPENEM [Concomitant]
     Indication: PYREXIA
     Route: 042
     Dates: end: 20030709
  14. TRAMADOL HCL [Concomitant]
     Indication: PAIN
  15. PARACETAMOL [Concomitant]
     Indication: PYREXIA
     Dates: end: 20030630
  16. FILGRASTIM [Concomitant]
     Indication: NEUTROPENIA
     Route: 058
     Dates: end: 20030704
  17. LYNESTRENOL [Concomitant]
     Indication: PROPHYLAXIS
     Route: 048
  18. LORMETAZEPAM [Concomitant]
     Indication: ANXIETY
  19. ALPRAZOLAM [Concomitant]
     Indication: ANXIETY
  20. CHLORHEXIDINE GLUCONATE [Concomitant]
     Indication: PROPHYLAXIS
  21. RED BLOOD CELLS [Concomitant]
     Indication: LEUKAEMIA
  22. HEPARIN FRACTION, SODIUM SALT [Concomitant]
     Indication: PROPHYLAXIS
  23. ALIZAPRIDE [Concomitant]
     Indication: NAUSEA
     Route: 042
     Dates: start: 20030622, end: 20030622
  24. AMPHOTERICIN B [Concomitant]
     Indication: PROPHYLAXIS
     Dates: end: 20030628

REACTIONS (5)
  - BRONCHOPNEUMONIA [None]
  - DEAFNESS [None]
  - LEUKAEMIA RECURRENT [None]
  - OTITIS MEDIA [None]
  - RHINORRHOEA [None]
